FAERS Safety Report 19937184 (Version 4)
Quarter: 2022Q1

REPORT INFORMATION
  Report Type: Spontaneous
  Country: US (occurrence: US)
  Receive Date: 20211010
  Receipt Date: 20220114
  Transmission Date: 20220424
  Serious: No
  Sender: FDA-Public Use
  Company Number: US-SA-SAC20211006001004

PATIENT
  Age: 31 Year
  Sex: Female

DRUGS (2)
  1. DUPIXENT [Suspect]
     Active Substance: DUPILUMAB
     Indication: Dermatitis atopic
     Dosage: 300 MG, OTHER
     Route: 058
     Dates: start: 20210707
  2. DUPIXENT [Suspect]
     Active Substance: DUPILUMAB
     Indication: Eczema

REACTIONS (13)
  - Alopecia [Unknown]
  - Weight increased [Unknown]
  - Vision blurred [Unknown]
  - Injection site mass [Unknown]
  - Urticaria [Unknown]
  - Rash [Unknown]
  - Eczema [Unknown]
  - Skin exfoliation [Unknown]
  - Pain [Unknown]
  - Blister [Unknown]
  - Rash macular [Unknown]
  - Product dose omission issue [Unknown]
  - Dry eye [Unknown]

NARRATIVE: CASE EVENT DATE: 20210920
